FAERS Safety Report 18324004 (Version 9)
Quarter: 2021Q1

REPORT INFORMATION
  Report Type: Spontaneous
  Country: US (occurrence: US)
  Receive Date: 20200929
  Receipt Date: 20210324
  Transmission Date: 20210419
  Serious: Yes (Hospitalization)
  Sender: FDA-Public Use
  Company Number: US-PFIZER INC-2020373203

PATIENT
  Age: 64 Year
  Sex: Female
  Weight: 64.4 kg

DRUGS (8)
  1. IBRANCE [Suspect]
     Active Substance: PALBOCICLIB
     Dosage: 100 MG, CYCLIC (21 DAYS ON THEN 7DAYS OFF)
     Route: 048
     Dates: start: 20200910
  2. NASAL SPRAY II [Concomitant]
  3. IBRANCE [Suspect]
     Active Substance: PALBOCICLIB
     Indication: OSTEOARTHRITIS
     Dosage: 125 MG, CYCLIC (DAILY 21 DAYS ON, 7 DAYS OFF)
     Route: 048
     Dates: start: 20200910, end: 202009
  4. IBRANCE [Suspect]
     Active Substance: PALBOCICLIB
     Indication: BREAST CANCER METASTATIC
     Dosage: 125 MG, CYCLIC (1 DAILY FOR 21 DAYS)
     Route: 048
     Dates: start: 20200909, end: 202009
  5. IBRANCE [Suspect]
     Active Substance: PALBOCICLIB
     Dosage: 100 MG, CYCLIC (DAILY 21 DAYS ON, 1 WEEK OFF)
     Route: 048
     Dates: start: 202009
  6. IBRANCE [Suspect]
     Active Substance: PALBOCICLIB
     Dosage: 75 MG, CYCLIC (21 DAYS ON THEN 7DAYS OFF)
     Route: 048
     Dates: start: 20200910
  7. FASLODEX [Suspect]
     Active Substance: FULVESTRANT
     Dosage: UNK
  8. FAMOTIDINE. [Concomitant]
     Active Substance: FAMOTIDINE
     Dosage: UNK

REACTIONS (25)
  - White blood cell count decreased [Unknown]
  - Fatigue [Unknown]
  - Gastrooesophageal reflux disease [Unknown]
  - Rash macular [Unknown]
  - Skin disorder [Unknown]
  - Diarrhoea [Recovering/Resolving]
  - Nasal dryness [Unknown]
  - Dehydration [Unknown]
  - Abdominal pain upper [Unknown]
  - Nail disorder [Unknown]
  - Decreased appetite [Unknown]
  - Rash [Unknown]
  - Pain [Unknown]
  - Musculoskeletal pain [Unknown]
  - Chest pain [Unknown]
  - Dyspnoea [Unknown]
  - Emotional disorder [Unknown]
  - Palmar erythema [Unknown]
  - Jugular vein thrombosis [Unknown]
  - Epistaxis [Unknown]
  - Pneumonitis [Unknown]
  - Nausea [Unknown]
  - Chapped lips [Unknown]
  - Onychoclasis [Unknown]
  - Pain in extremity [Unknown]

NARRATIVE: CASE EVENT DATE: 2020
